FAERS Safety Report 8999453 (Version 2)
Quarter: 2013Q2

REPORT INFORMATION
  Report Type: Spontaneous
  Country: NO (occurrence: NO)
  Receive Date: 20130103
  Receipt Date: 20130507
  Transmission Date: 20140414
  Serious: Yes (Other)
  Sender: FDA-Public Use
  Company Number: NO-BAYER-2012-135467

PATIENT
  Sex: Female

DRUGS (1)
  1. CANESTEN VAG 500 MG + KRM 1% [Suspect]
     Dosage: 500 MG, UNK
     Dates: start: 20121221

REACTIONS (2)
  - Haemorrhage [None]
  - Exposure during pregnancy [None]
